FAERS Safety Report 5231210-1 (Version None)
Quarter: 2007Q1

REPORT INFORMATION
  Report Type: 
  Country: None (occurrence: None)
  Receive Date: 20070206
  Receipt Date: 20070130
  Transmission Date: 20070707
  Serious: Yes (Hospitalization)
  Sender: FDA-Public Use
  Company Number: US-JNJFOC-20070107463

PATIENT
  Age: 70 Year
  Sex: Female

DRUGS (7)
  1. CYCLOBENZAPRINE HCL [Suspect]
     Indication: MUSCLE SPASMS
     Route: 048
  2. NARDIL [Interacting]
  3. NARDIL [Interacting]
     Indication: DEPRESSION
     Dosage: FOR SEVERAL YEARS
  4. CEFAZOLIN [Concomitant]
     Indication: ARTHRITIS INFECTIVE
  5. OXYCODONE HCL [Concomitant]
     Indication: PAIN
  6. GENERAL ANESTHESIA [Concomitant]
  7. ACETAMINOPHEN [Concomitant]
     Indication: PAIN
     Route: 048

REACTIONS (2)
  - DRUG INTERACTION [None]
  - SEROTONIN SYNDROME [None]
